FAERS Safety Report 4903370-0 (Version None)
Quarter: 2006Q1

REPORT INFORMATION
  Report Type: 
  Country: None (occurrence: None)
  Receive Date: 20060206
  Receipt Date: 20060206
  Transmission Date: 20060701
  Serious: Yes (Hospitalization)
  Sender: FDA-Public Use
  Company Number: None

PATIENT
  Age: 78 Year
  Sex: Female
  Weight: 89 kg

DRUGS (18)
  1. VENOFER [Suspect]
     Indication: HAEMATOCRIT DECREASED
     Dosage: 100 MG, INFUSION OVER 15 MIN, IV
     Route: 042
     Dates: start: 20060125
  2. VENOFER [Suspect]
     Indication: HAEMOGLOBIN DECREASED
     Dosage: 100 MG, INFUSION OVER 15 MIN, IV
     Route: 042
     Dates: start: 20060125
  3. ALENDRONATE SODIUM [Concomitant]
  4. PROCAINAMIDE ER [Concomitant]
  5. TOPROL-XL [Concomitant]
  6. DIGOXIN [Concomitant]
  7. INSULIN [Concomitant]
  8. ASPIRIN [Concomitant]
  9. FUROSEMIDE [Concomitant]
  10. CIPRO [Concomitant]
  11. PROTONIX [Concomitant]
  12. ZOLOFT [Concomitant]
  13. AMBIEN [Concomitant]
  14. COMBIVENT [Concomitant]
  15. CLONIDINE [Concomitant]
  16. APAP TAB [Concomitant]
  17. AMLODIPINE [Concomitant]
  18. ALBUTEROL [Concomitant]

REACTIONS (1)
  - HYPERGLYCAEMIA [None]
